FAERS Safety Report 16306733 (Version 4)
Quarter: 2019Q3

REPORT INFORMATION
  Report Type: Report from Study
  Country: US (occurrence: US)
  Receive Date: 20190513
  Receipt Date: 20190819
  Transmission Date: 20191004
  Serious: No
  Sender: FDA-Public Use
  Company Number: PHEH2019US019979

PATIENT
  Age: 52 Year
  Sex: Female

DRUGS (2)
  1. COSENTYX [Suspect]
     Active Substance: SECUKINUMAB
     Indication: PSORIASIS
     Dosage: 300 MG, QW
     Route: 058
     Dates: start: 20190415
  2. COSENTYX [Suspect]
     Active Substance: SECUKINUMAB
     Indication: PSORIATIC ARTHROPATHY
     Dosage: 300 MG, QMO
     Route: 030
     Dates: start: 20190514

REACTIONS (5)
  - Feeling abnormal [Unknown]
  - Gallbladder disorder [Recovering/Resolving]
  - Abdominal pain [Unknown]
  - Incorrect route of product administration [Unknown]
  - Abdominal distension [Unknown]

NARRATIVE: CASE EVENT DATE: 20190503
